FAERS Safety Report 10196503 (Version 2)
Quarter: 2014Q2

REPORT INFORMATION
  Report Type: Spontaneous
  Country: IT (occurrence: IT)
  Receive Date: 20140527
  Receipt Date: 20140527
  Transmission Date: 20141212
  Serious: Yes (Hospitalization)
  Sender: FDA-Public Use
  Company Number: IT-PFIZER INC-2014142287

PATIENT
  Age: 67 Year
  Sex: Female

DRUGS (11)
  1. ATROPINE SULFATE [Suspect]
     Dosage: 0.5 MG, UNK
  2. BUPIVACAINE HYDROCHLORIDE [Concomitant]
     Indication: ANAESTHESIA
     Dosage: 0.15% BOLUS OF 7.5 MG FOLLOWED BY CONTINUOUS INFUSION AT 4-6 ML/H
  3. PROPOFOL [Concomitant]
     Indication: GENERAL ANAESTHESIA
     Dosage: 140 MG, UNK
  4. REMIFENTANIL [Concomitant]
     Indication: GENERAL ANAESTHESIA
     Dosage: 1-3 NG/ML, UNK
  5. REMIFENTANIL [Concomitant]
     Dosage: 1 NG/ML, UNK
  6. ROCURONIUM [Concomitant]
     Indication: GENERAL ANAESTHESIA
     Dosage: 50 MG, UNK
  7. SEVOFLURANE [Concomitant]
     Indication: ANAESTHESIA
     Dosage: 1.3 - 1.4%, UNK
  8. BISOPROLOL [Concomitant]
     Indication: HYPERTENSION
     Dosage: UNK
  9. HYDROCHLOROTHIAZIDE [Concomitant]
     Indication: HYPERTENSION
     Dosage: UNK
  10. DOXAZOSIN [Concomitant]
     Indication: HYPERTENSION
     Dosage: UNK
  11. LORAZEPAM [Concomitant]
     Indication: PREMEDICATION
     Dosage: 2 MG, UNK
     Route: 060

REACTIONS (1)
  - Arteriospasm coronary [Recovered/Resolved]
